FAERS Safety Report 13945028 (Version 1)
Quarter: 2017Q3

REPORT INFORMATION
  Report Type: Spontaneous
  Country: US (occurrence: US)
  Receive Date: 20170907
  Receipt Date: 20170907
  Transmission Date: 20171128
  Serious: Yes (Other)
  Sender: FDA-Public Use
  Company Number: US-JAZZ-2017-US-011552

PATIENT
  Sex: Male

DRUGS (2)
  1. XYREM [Suspect]
     Active Substance: SODIUM OXYBATE
     Indication: NARCOLEPSY
     Dosage: 2 G, QD FIRST DOSE
     Route: 048
     Dates: start: 201703
  2. XYREM [Suspect]
     Active Substance: SODIUM OXYBATE
     Indication: CATAPLEXY
     Dosage: 2.5 G, QD SECOND DOSE
     Route: 048
     Dates: start: 201703

REACTIONS (3)
  - Pain [Not Recovered/Not Resolved]
  - Paralysis [Unknown]
  - Staphylococcal infection [Unknown]
